FAERS Safety Report 12982270 (Version 1)
Quarter: 2016Q4

REPORT INFORMATION
  Report Type: Spontaneous
  Country: US (occurrence: US)
  Receive Date: 20161128
  Receipt Date: 20161128
  Transmission Date: 20170207
  Serious: Yes (Hospitalization)
  Sender: FDA-Public Use
  Company Number: None

PATIENT
  Age: 40 Year
  Sex: Female
  Weight: 107 kg

DRUGS (20)
  1. MORPHINE [Concomitant]
     Active Substance: MORPHINE
  2. DOXYCYCLINE. [Suspect]
     Active Substance: DOXYCYCLINE
     Indication: FOLLICULITIS
     Route: 048
     Dates: start: 20160718, end: 20160720
  3. DIPHENHYDRAMINE. [Concomitant]
     Active Substance: DIPHENHYDRAMINE
  4. HEPARIN [Concomitant]
     Active Substance: HEPARIN SODIUM
  5. INSULIN GLARGINE [Concomitant]
     Active Substance: INSULIN GLARGINE
  6. HYDROCODONE/ACETAMINOPHEN [Concomitant]
     Active Substance: ACETAMINOPHEN\HYDROCODONE
  7. RENAL VITAMIN [Concomitant]
  8. DOXERCALCIFEROL. [Concomitant]
     Active Substance: DOXERCALCIFEROL
  9. EPOETIN ALFA [Concomitant]
     Active Substance: ERYTHROPOIETIN
  10. WARFARIN [Concomitant]
     Active Substance: WARFARIN
  11. CARVEDILOL. [Concomitant]
     Active Substance: CARVEDILOL
  12. LISINOPRIL. [Concomitant]
     Active Substance: LISINOPRIL
  13. ATORVASTATIN [Concomitant]
     Active Substance: ATORVASTATIN
  14. CALCIUM ACETATE. [Concomitant]
     Active Substance: CALCIUM ACETATE
  15. FUROSEMIDE. [Concomitant]
     Active Substance: FUROSEMIDE
  16. RANITIDINE. [Concomitant]
     Active Substance: RANITIDINE
  17. AMLODIPINE [Concomitant]
     Active Substance: AMLODIPINE BESYLATE
  18. ASPIRIN. [Concomitant]
     Active Substance: ASPIRIN
  19. FERROUS SULFATE. [Concomitant]
     Active Substance: FERROUS SULFATE
  20. ONDANSETRON [Concomitant]
     Active Substance: ONDANSETRON

REACTIONS (2)
  - Eye swelling [None]
  - Nephrotic syndrome [None]

NARRATIVE: CASE EVENT DATE: 20160719
